FAERS Safety Report 7708987-6 (Version None)
Quarter: 2011Q3

REPORT INFORMATION
  Report Type: 
  Country: None (occurrence: None)
  Receive Date: 20110825
  Receipt Date: 20110822
  Transmission Date: 20111222
  Serious: Yes (Other)
  Sender: FDA-Public Use
  Company Number: AU-PFIZER INC-2011194227

PATIENT
  Sex: Female

DRUGS (8)
  1. MORPHINE [Suspect]
     Dosage: UNK
  2. ALCOHOL [Suspect]
     Dosage: UNK
  3. TRAZODONE HCL [Suspect]
     Dosage: 80 DOSES TOTAL
  4. DIAZEPAM [Suspect]
     Dosage: 3 DOSES TOTAL
  5. ZOLPIDEM [Suspect]
     Dosage: 10 DOSES TOTAL
  6. TEMAZEPAM [Suspect]
     Dosage: UNK
  7. CODEINE [Suspect]
     Dosage: UNK
  8. OXAZEPAM [Suspect]
     Dosage: UNK

REACTIONS (3)
  - SOMNAMBULISM [None]
  - OVERDOSE [None]
  - ROAD TRAFFIC ACCIDENT [None]
